FAERS Safety Report 4519812-9 (Version None)
Quarter: 2004Q4

REPORT INFORMATION
  Report Type: 
  Country: None (occurrence: None)
  Receive Date: 20041207
  Receipt Date: 20041124
  Transmission Date: 20050328
  Serious: Yes (Hospitalization)
  Sender: FDA-Public Use
  Company Number: JP-JNJFOC-20041105803

PATIENT
  Age: 60 Year
  Sex: Male

DRUGS (11)
  1. OFLOCET [Suspect]
     Indication: UNEVALUABLE EVENT
     Route: 049
     Dates: start: 20040325, end: 20040330
  2. TAVANIC [Suspect]
     Indication: UNEVALUABLE EVENT
     Dates: start: 20040331, end: 20040404
  3. GENTAMICINE [Suspect]
     Indication: UNEVALUABLE EVENT
     Route: 042
     Dates: start: 20040402, end: 20040404
  4. TIENAM [Suspect]
     Dates: start: 20040403, end: 20040404
  5. TIENAM [Suspect]
     Indication: UNEVALUABLE EVENT
     Dates: start: 20040403, end: 20040404
  6. ZOLOFT [Concomitant]
     Indication: UNEVALUABLE EVENT
  7. TADENAN [Concomitant]
  8. OMEPRAZOLE [Concomitant]
  9. DIHYDROERGOTAMINE MESYLATE [Concomitant]
  10. HEPT-A-MYL [Concomitant]
  11. DANATROL [Concomitant]

REACTIONS (4)
  - CEREBROVASCULAR ACCIDENT [None]
  - MENINGITIS [None]
  - STATUS EPILEPTICUS [None]
  - THERAPY NON-RESPONDER [None]
